FAERS Safety Report 18585398 (Version 1)
Quarter: 2020Q4

REPORT INFORMATION
  Report Type: Spontaneous
  Country: US (occurrence: US)
  Receive Date: 20201204
  Receipt Date: 20201204
  Transmission Date: 20210114
  Serious: Yes (Other)
  Sender: FDA-Public Use
  Company Number: None

PATIENT
  Age: 35 Year
  Sex: Female
  Weight: 67.5 kg

DRUGS (4)
  1. OXYCODONE 5 MG [Suspect]
     Active Substance: OXYCODONE
     Indication: POSTOPERATIVE ANALGESIA
     Dosage: ?          QUANTITY:36 TABLET(S);?
     Route: 048
     Dates: start: 20201204, end: 20201204
  2. BIRTH CONTROL PILLS [Concomitant]
     Active Substance: UNSPECIFIED INGREDIENT
  3. PROBIOTICS [Concomitant]
     Active Substance: PROBIOTICS NOS
  4. COLLAGEN [Concomitant]
     Active Substance: COLLAGEN

REACTIONS (3)
  - Drug ineffective [None]
  - Product substitution issue [None]
  - Inadequate analgesia [None]

NARRATIVE: CASE EVENT DATE: 20201204
